FAERS Safety Report 13208076 (Version 2)
Quarter: 2017Q1

REPORT INFORMATION
  Report Type: Spontaneous
  Country: US (occurrence: US)
  Receive Date: 20170209
  Receipt Date: 20170209
  Transmission Date: 20170428
  Serious: Yes (Death, Other)
  Sender: FDA-Public Use
  Company Number: US-BRISTOL-MYERS SQUIBB COMPANY-BMS-2017-010428

PATIENT

DRUGS (1)
  1. OPDIVO [Suspect]
     Active Substance: NIVOLUMAB
     Indication: TRANSITIONAL CELL CARCINOMA
     Dosage: 240 MG, Q2WK
     Route: 042

REACTIONS (10)
  - Death [Fatal]
  - Fatigue [Unknown]
  - Pain [Unknown]
  - Small intestinal obstruction [Unknown]
  - Sepsis [Unknown]
  - General physical health deterioration [Unknown]
  - Diarrhoea [Unknown]
  - Decreased appetite [Unknown]
  - Urinary tract infection [Unknown]
  - Nausea [Unknown]
